FAERS Safety Report 5529034-0 (Version None)
Quarter: 2007Q4

REPORT INFORMATION
  Report Type: 
  Country: None (occurrence: None)
  Receive Date: 20071129
  Receipt Date: 20071121
  Transmission Date: 20080405
  Serious: Yes (Other)
  Sender: FDA-Public Use
  Company Number: US-JNJFOC-20071108229

PATIENT
  Sex: Female
  Weight: 80.29 kg

DRUGS (7)
  1. DURAGESIC-100 [Suspect]
     Dosage: 1X 75 UG/HR PATCH PLUS 1X 25 UG/HR PATCH
     Route: 062
  2. DURAGESIC-100 [Suspect]
     Route: 062
  3. DURAGESIC-100 [Suspect]
     Indication: PAIN
     Route: 062
  4. FENTANYL TRANSDERMAL SYSTEM [Suspect]
     Indication: PAIN
     Route: 062
  5. PAXIL [Concomitant]
     Indication: DEPRESSION
     Route: 048
  6. UNSPECIFIED MEDICATION [Concomitant]
     Indication: NEOPLASM PROPHYLAXIS
     Route: 048
  7. UNSPECIFIED MEDICATION [Concomitant]
     Indication: ABNORMAL FAECES
     Route: 048

REACTIONS (3)
  - BREAST CANCER [None]
  - HYPOTHYROIDISM [None]
  - THERAPEUTIC RESPONSE UNEXPECTED WITH DRUG SUBSTITUTION [None]
